FAERS Safety Report 9392633 (Version 1)
Quarter: 2013Q3

REPORT INFORMATION
  Report Type: Spontaneous
  Country: US (occurrence: None)
  Receive Date: 20130708
  Receipt Date: 20130708
  Transmission Date: 20140515
  Serious: Yes (Life-Threatening)
  Sender: FDA-Public Use
  Company Number: None

PATIENT
  Age: 48 Year
  Sex: Male
  Weight: 106.4 kg

DRUGS (1)
  1. VYDOX [Suspect]
     Dates: start: 20130703

REACTIONS (10)
  - Acute myocardial infarction [None]
  - Coronary artery stenosis [None]
  - Drug interaction [None]
  - Anaphylactoid shock [None]
  - Coronary artery occlusion [None]
  - Thrombosis in device [None]
  - Hypovolaemia [None]
  - Reperfusion arrhythmia [None]
  - Coronary artery thrombosis [None]
  - Contrast media allergy [None]
